FAERS Safety Report 5265773-7 (Version None)
Quarter: 2007Q1

REPORT INFORMATION
  Report Type: 
  Country: None (occurrence: None)
  Receive Date: 20061213
  Receipt Date: 20040713
  Transmission Date: 20070707
  Serious: Yes (Other)
  Sender: FDA-Public Use
  Company Number: 2004UW09184

PATIENT
  Age: 68 Year
  Sex: Female
  Weight: 61.6892 kg

DRUGS (15)
  1. IRESSA [Suspect]
     Indication: NON-SMALL CELL LUNG CANCER
     Dosage: 250 MG QD PO
     Route: 048
     Dates: start: 20020101, end: 20040523
  2. PREVACID [Concomitant]
  3. GLIPIZIDE [Concomitant]
  4. ERGOLOID [Concomitant]
  5. TINCTURE OF OPIUM [Concomitant]
  6. NO MATCH [Concomitant]
  7. ZYRTEC [Concomitant]
  8. EYE DROPS [Concomitant]
  9. LEVOBUNOLOL [Concomitant]
  10. CHOLESTYRAMINE [Concomitant]
  11. ATACAND [Concomitant]
  12. FOLIC ACID [Concomitant]
  13. CYCLOBENZAPRINE HCL [Concomitant]
  14. SYNTHROID [Concomitant]
  15. HYDROMET [Concomitant]

REACTIONS (1)
  - PAIN [None]
